FAERS Safety Report 15679708 (Version 1)
Quarter: 2018Q4

REPORT INFORMATION
  Report Type: Spontaneous
  Country: RS (occurrence: RS)
  Receive Date: 20181203
  Receipt Date: 20181203
  Transmission Date: 20190205
  Serious: Yes (Other)
  Sender: FDA-Public Use
  Company Number: RS-ROCHE-2222392

PATIENT
  Age: 61 Year
  Sex: Female
  Weight: 50 kg

DRUGS (7)
  1. ACTEMRA [Suspect]
     Active Substance: TOCILIZUMAB
     Route: 042
     Dates: start: 20180820, end: 20180924
  2. ACTEMRA [Suspect]
     Active Substance: TOCILIZUMAB
     Route: 042
     Dates: start: 20180925, end: 20181024
  3. ACTEMRA [Suspect]
     Active Substance: TOCILIZUMAB
     Route: 042
     Dates: start: 20180716, end: 20180819
  4. METOJECT [Concomitant]
     Active Substance: METHOTREXATE SODIUM
  5. ACTEMRA [Suspect]
     Active Substance: TOCILIZUMAB
     Indication: RHEUMATOID ARTHRITIS
     Route: 042
     Dates: start: 20180618
  6. ACTEMRA [Suspect]
     Active Substance: TOCILIZUMAB
     Route: 042
     Dates: start: 20181025
  7. LIV 52 [Concomitant]
     Route: 065

REACTIONS (8)
  - Neutropenia [Unknown]
  - Thrombocytopenia [Unknown]
  - Leukopenia [Unknown]
  - Aspartate aminotransferase increased [Unknown]
  - Bacterial test positive [Unknown]
  - Gamma-glutamyltransferase increased [Unknown]
  - Motor neurone disease [Unknown]
  - Alanine aminotransferase increased [Unknown]
